FAERS Safety Report 23096883 (Version 1)
Quarter: 2023Q4

REPORT INFORMATION
  Report Type: Report from Study
  Country: HN (occurrence: HN)
  Receive Date: 20231023
  Receipt Date: 20231023
  Transmission Date: 20240110
  Serious: Yes (Other)
  Sender: FDA-Public Use
  Company Number: HN-MYLANLABS-2023M1111243

PATIENT
  Age: 78 Year
  Sex: Male
  Weight: 64.8 kg

DRUGS (3)
  1. LIPITOR [Suspect]
     Active Substance: ATORVASTATIN CALCIUM
     Indication: Blood triglycerides increased
     Dosage: 80 MILLIGRAM, QD (1 TABLET DAILY FOR ABOUT 5 YEARS)
     Route: 048
  2. LIPITOR [Suspect]
     Active Substance: ATORVASTATIN CALCIUM
     Indication: Blood cholesterol increased
  3. Minart am [Concomitant]
     Dosage: 1 DOSAGE FORM, QD (1 TABLET DAILY FOR ABOUT 3 YEARS)
     Route: 048

REACTIONS (2)
  - Cardiac operation [Not Recovered/Not Resolved]
  - Dysphonia [Not Recovered/Not Resolved]

NARRATIVE: CASE EVENT DATE: 20231017
